FAERS Safety Report 21649928 (Version 1)
Quarter: 2022Q4

REPORT INFORMATION
  Report Type: Spontaneous
  Country: US (occurrence: US)
  Receive Date: 20221128
  Receipt Date: 20221128
  Transmission Date: 20230113
  Serious: Yes (Other)
  Sender: FDA-Public Use
  Company Number: US-JNJFOC-20221144388

PATIENT
  Age: 33 Year
  Sex: Male

DRUGS (1)
  1. RISPERDAL [Suspect]
     Active Substance: RISPERIDONE
     Indication: Product used for unknown indication
     Route: 065
     Dates: start: 2016

REACTIONS (7)
  - Myocardial infarction [Unknown]
  - Gynaecomastia [Unknown]
  - Blood pressure abnormal [Unknown]
  - Dizziness [Unknown]
  - Heart rate increased [Unknown]
  - Weight decreased [Unknown]
  - Depression [Unknown]
